FAERS Safety Report 18292310 (Version 1)
Quarter: 2020Q3

REPORT INFORMATION
  Report Type: Other
  Country: GB (occurrence: GB)
  Receive Date: 20200922
  Receipt Date: 20200922
  Transmission Date: 20201103
  Serious: Yes (Other)
  Sender: FDA-Public Use
  Company Number: GB-DENTSPLY-2020SCDP000283

PATIENT
  Age: 60 Year
  Sex: Female

DRUGS (1)
  1. PRILOCAINE AND LIDOCAINE [Suspect]
     Active Substance: LIDOCAINE\PRILOCAINE
     Indication: LOCAL ANAESTHESIA
     Dosage: LIDOCAINE WITH PRILOCAINE 5% CREAM WAS COMMONLY KNOWN BY THE TRADE NAME EMLA CREAM, WHICH WAS AN ABB
     Route: 061

REACTIONS (8)
  - Chemical burn of skin [None]
  - Photophobia [None]
  - Injury corneal [None]
  - Chemical burns of eye [None]
  - Periorbital oedema [None]
  - Exposure to toxic agent [None]
  - Accidental exposure to product [None]
  - Medication error [None]
